FAERS Safety Report 18571616 (Version 1)
Quarter: 2020Q4

REPORT INFORMATION
  Report Type: Spontaneous
  Country: US (occurrence: US)
  Receive Date: 20201202
  Receipt Date: 20201202
  Transmission Date: 20210114
  Serious: No
  Sender: FDA-Public Use
  Company Number: US-009507513-2012USA000182

PATIENT
  Sex: Male

DRUGS (3)
  1. FOSAMAX [Suspect]
     Active Substance: ALENDRONATE SODIUM
     Indication: RHEUMATOID ARTHRITIS
     Dosage: 70 MILLIGRAM
     Route: 048
     Dates: start: 1975
  2. FOSAMAX [Suspect]
     Active Substance: ALENDRONATE SODIUM
     Indication: MYOPATHY
  3. FOSAMAX [Suspect]
     Active Substance: ALENDRONATE SODIUM
     Indication: BONE DISORDER
     Dosage: 70 MILLIGRAM
     Route: 048
     Dates: start: 1995

REACTIONS (1)
  - Product use in unapproved indication [Unknown]

NARRATIVE: CASE EVENT DATE: 1975
